FAERS Safety Report 6168023-2 (Version None)
Quarter: 2009Q2

REPORT INFORMATION
  Report Type: 
  Country: None (occurrence: None)
  Receive Date: 20090427
  Receipt Date: 20090422
  Transmission Date: 20091009
  Serious: Yes (Hospitalization, Other)
  Sender: FDA-Public Use
  Company Number: US-ALLERGAN-0905556US

PATIENT
  Age: 48 Year
  Sex: Male

DRUGS (5)
  1. BOTOX [Suspect]
     Indication: TORTICOLLIS
     Dosage: UNK, SINGLE
     Route: 030
  2. BOTOX [Suspect]
     Dosage: UNK, SINGLE
     Route: 030
  3. BOTOX [Suspect]
     Dosage: UNK, SINGLE
     Route: 030
  4. BOTOX [Suspect]
     Dosage: UNK, SINGLE
     Route: 030
  5. BOTOX [Suspect]
     Dosage: UNK, SINGLE
     Route: 030
     Dates: start: 20071005, end: 20071005

REACTIONS (8)
  - AREFLEXIA [None]
  - ARTERIAL OCCLUSIVE DISEASE [None]
  - OVERDOSE [None]
  - PARKINSON'S DISEASE [None]
  - PLEURAL DISORDER [None]
  - PLEURAL EFFUSION [None]
  - PNEUMONIA ASPIRATION [None]
  - URTICARIA [None]
